FAERS Safety Report 22603098 (Version 4)
Quarter: 2024Q3

REPORT INFORMATION
  Report Type: Spontaneous
  Country: US (occurrence: US)
  Receive Date: 20230615
  Receipt Date: 20240711
  Transmission Date: 20241016
  Serious: Yes (Other)
  Sender: NOVO NORDISK
  Company Number: US-NOVOPROD-1076074

PATIENT
  Sex: Female

DRUGS (4)
  1. NOVOLOG [Suspect]
     Active Substance: INSULIN ASPART
     Dosage: 4 IU
  2. NOVOLOG [Suspect]
     Active Substance: INSULIN ASPART
     Dosage: UNK (INJECT 10 UNITS IF BLOOD SUGAR IS HIGHER THAN 331)
     Route: 042
     Dates: start: 20030101
  3. NOVOLOG [Suspect]
     Active Substance: INSULIN ASPART
     Indication: Diabetes mellitus
     Dosage: UNK
     Route: 042
     Dates: start: 20030101
  4. TRESIBA [Concomitant]
     Active Substance: INSULIN DEGLUDEC
     Indication: Diabetes mellitus
     Dosage: UNK
     Route: 058
     Dates: start: 2003

REACTIONS (5)
  - Blood glucose increased [Not Recovered/Not Resolved]
  - Device malfunction [Not Recovered/Not Resolved]
  - Incorrect dose administered by device [Unknown]
  - Wrong technique in device usage process [Unknown]
  - Incorrect route of product administration [Unknown]
